FAERS Safety Report 18760836 (Version 13)
Quarter: 2021Q3

REPORT INFORMATION
  Report Type: Spontaneous
  Country: BR (occurrence: BR)
  Receive Date: 20210120
  Receipt Date: 20210913
  Transmission Date: 20211014
  Serious: Yes (Other)
  Sender: FDA-Public Use
  Company Number: BR-IPSEN BIOPHARMACEUTICALS, INC.-2019-10493

PATIENT
  Age: 63 Year
  Sex: Female

DRUGS (9)
  1. CLINFAR [Concomitant]
     Active Substance: SIMVASTATIN
     Indication: HYPERCHOLESTEROLAEMIA
     Dosage: 1 TABLET FOR 5 YEARS
     Route: 048
  2. LOSARTAN. [Concomitant]
     Active Substance: LOSARTAN
     Indication: HYPERTENSION
     Dosage: 1 TABLET PER DAY FOR LAST 5 YEARS
     Route: 048
  3. GLIFAGE [Concomitant]
     Active Substance: METFORMIN HYDROCHLORIDE
     Indication: INSULIN RESISTANCE
     Dosage: 1 TABLET PER DAY FOR LAST 5 YEARS (ONGOING)
     Route: 048
  4. LITOCIT [Concomitant]
     Indication: NEPHROLITHIASIS
     Dosage: 1 TABLET PER DAY FOR 5 YEARS
     Route: 048
  5. SOMATULINE AUTOGEL [Suspect]
     Active Substance: LANREOTIDE ACETATE
     Indication: ACROMEGALY
     Dosage: 120 MG EVERY 28 DAYS (SITE: BUTTOCKS)
     Route: 058
     Dates: start: 20151110
  6. COVID?19 VACCINE NOS. [Suspect]
     Active Substance: COVID-19 VACCINE NOS
     Indication: COVID-19 PROPHYLAXIS
     Route: 065
     Dates: start: 20210422, end: 20210422
  7. DPREV [Concomitant]
     Indication: VITAMIN SUPPLEMENTATION
     Dosage: 1 TABLET PER WEEK FOR LAST 5 YEARS (ONGOING)
     Route: 048
  8. CABERGOLIN [Concomitant]
     Active Substance: CABERGOLINE
     Indication: ACROMEGALY
     Dosage: 2 TABLETS PER WEEK FOR LAST 3 YEARS (ONGOING)
     Route: 048
  9. NEBILET [Concomitant]
     Active Substance: NEBIVOLOL
     Indication: HYPERTENSION
     Dosage: 1/2 TABLET PER DAY FOR 8 YEARS
     Route: 048

REACTIONS (16)
  - Pyrexia [Recovered/Resolved]
  - Wrong technique in product usage process [Unknown]
  - Product availability issue [Unknown]
  - Hyperhidrosis [Recovering/Resolving]
  - Malaise [Not Recovered/Not Resolved]
  - Wrong technique in product usage process [Unknown]
  - Injection site pain [Recovering/Resolving]
  - Injection site nodule [Recovered/Resolved]
  - Herpes virus infection [Recovered/Resolved]
  - Needle issue [Unknown]
  - Gallbladder polyp [Not Recovered/Not Resolved]
  - Flatulence [Not Recovered/Not Resolved]
  - Cholelithiasis [Not Recovered/Not Resolved]
  - Inappropriate schedule of product administration [Unknown]
  - Abdominal discomfort [Not Recovered/Not Resolved]
  - Inappropriate schedule of product administration [Unknown]

NARRATIVE: CASE EVENT DATE: 2015
